FAERS Safety Report 20694301 (Version 3)
Quarter: 2022Q3

REPORT INFORMATION
  Report Type: Spontaneous
  Country: US (occurrence: US)
  Receive Date: 20220411
  Receipt Date: 20220715
  Transmission Date: 20221026
  Serious: Yes (Other)
  Sender: FDA-Public Use
  Company Number: US-JNJFOC-20220406899

PATIENT
  Sex: Female

DRUGS (4)
  1. ELMIRON [Suspect]
     Active Substance: PENTOSAN POLYSULFATE SODIUM
     Indication: Cystitis interstitial
     Dosage: 100 MG, 2 PILLS TWICE DAILY
     Route: 048
     Dates: start: 2003, end: 2011
  2. ELMIRON [Suspect]
     Active Substance: PENTOSAN POLYSULFATE SODIUM
     Dosage: 100 MG, 2 PILLS TWICE DAILY
     Route: 048
     Dates: end: 2012
  3. LIPITOR [Concomitant]
     Active Substance: ATORVASTATIN CALCIUM
     Indication: Hypertension
     Dates: start: 1990
  4. LISINOPRIL [Concomitant]
     Active Substance: LISINOPRIL
     Indication: Hypertension
     Dates: start: 2008

REACTIONS (9)
  - Dry age-related macular degeneration [Not Recovered/Not Resolved]
  - Maculopathy [Unknown]
  - Vitreous detachment [Unknown]
  - Dry eye [Unknown]
  - Retinal pigmentation [Unknown]
  - Visual impairment [Unknown]
  - Posterior capsule opacification [Unknown]
  - Retinal drusen [Unknown]
  - Off label use [Unknown]

NARRATIVE: CASE EVENT DATE: 20030101
